FAERS Safety Report 10127552 (Version 1)
Quarter: 2014Q2

REPORT INFORMATION
  Report Type: Spontaneous
  Country: JP (occurrence: JP)
  Receive Date: 20140428
  Receipt Date: 20140428
  Transmission Date: 20141212
  Serious: Yes (Death)
  Sender: FDA-Public Use
  Company Number: JP-MYLANLABS-2014S1008770

PATIENT
  Age: 5 Decade
  Sex: 0
  Weight: 68.5 kg

DRUGS (8)
  1. FLUVOXAMINE [Suspect]
     Indication: INTENTIONAL OVERDOSE
     Route: 065
  2. FLUVOXAMINE [Interacting]
     Indication: OFF LABEL USE
     Route: 065
  3. LITHIUM [Interacting]
     Indication: INTENTIONAL OVERDOSE
     Route: 065
  4. LITHIUM [Interacting]
     Indication: OFF LABEL USE
     Route: 065
  5. CHLORPROMAZINE [Concomitant]
     Route: 065
  6. DIAZEPAM [Concomitant]
     Route: 065
  7. ZOLPIDEM [Concomitant]
     Route: 065
  8. PROMETHAZINE [Concomitant]
     Route: 065

REACTIONS (4)
  - Intentional overdose [Fatal]
  - Completed suicide [Fatal]
  - Serotonin syndrome [Fatal]
  - Drug interaction [Fatal]
